FAERS Safety Report 23614882 (Version 2)
Quarter: 2024Q3

REPORT INFORMATION
  Report Type: Spontaneous
  Country: US (occurrence: US)
  Receive Date: 20240311
  Receipt Date: 20240829
  Transmission Date: 20241016
  Serious: No
  Sender: SANOFI AVENTIS
  Company Number: US-SA-SAC20240304000941

PATIENT
  Age: 66 Year
  Sex: Female

DRUGS (1)
  1. DUPIXENT [Suspect]
     Active Substance: DUPILUMAB
     Indication: Eczema
     Dosage: 300 MG, QOW
     Route: 058

REACTIONS (7)
  - Injection site pain [Unknown]
  - Supraventricular extrasystoles [Unknown]
  - Rash macular [Unknown]
  - Vitreous floaters [Unknown]
  - Pruritus [Unknown]
  - Eczema [Recovered/Resolved]
  - Therapeutic response decreased [Recovered/Resolved]
